FAERS Safety Report 21411561 (Version 5)
Quarter: 2023Q2

REPORT INFORMATION
  Report Type: Spontaneous
  Country: CA (occurrence: CA)
  Receive Date: 20221005
  Receipt Date: 20230420
  Transmission Date: 20230722
  Serious: Yes (Other)
  Sender: FDA-Public Use
  Company Number: CA-PFIZER INC-2021725910

PATIENT
  Age: 85 Year
  Sex: Female

DRUGS (2)
  1. RUXIENCE [Suspect]
     Active Substance: RITUXIMAB-PVVR
     Indication: Rheumatoid arthritis
     Dosage: 625 MG, DAY 1 AND 15
     Route: 041
     Dates: start: 20220223
  2. RUXIENCE [Suspect]
     Active Substance: RITUXIMAB-PVVR
     Dosage: 625 MG, DAY 1 AND 15
     Route: 042
     Dates: start: 20220311

REACTIONS (4)
  - Cataract [Recovered/Resolved]
  - Cataract [Recovered/Resolved]
  - Localised infection [Recovered/Resolved]
  - Off label use [Unknown]

NARRATIVE: CASE EVENT DATE: 20220801
